FAERS Safety Report 15701499 (Version 1)
Quarter: 2018Q4

REPORT INFORMATION
  Report Type: Spontaneous
  Country: CN (occurrence: CN)
  Receive Date: 20181207
  Receipt Date: 20181207
  Transmission Date: 20190205
  Serious: Yes (Other)
  Sender: FDA-Public Use
  Company Number: CN-BAXTER-2018BAX029538

PATIENT
  Age: 2 Year
  Sex: Female
  Weight: 13.7 kg

DRUGS (13)
  1. 5% GLUCOSE AND 0.9% SODIUM CHLORIDE INJECTION [Suspect]
     Active Substance: DEXTROSE\SODIUM CHLORIDE
     Dosage: DILUTION OF CYCLOPHOSPHAMIDE + (4:1) GLUCOSE AND SODIUM CHLORIDE INJECTION + 0.9% SODIUM CHLORIDE IN
     Route: 041
     Dates: start: 20181009, end: 20181009
  2. 5% GLUCOSE AND 0.9% SODIUM CHLORIDE INJECTION [Suspect]
     Active Substance: DEXTROSE\SODIUM CHLORIDE
     Indication: MEDICATION DILUTION
     Dosage: DILUTION OF CYTOSAR + (4:1) GLUCOSE AND SODIUM CHLORIDE INJECTION + 0.9% SODIUM CHLORIDE INJECTION
     Route: 041
     Dates: start: 20181009, end: 20181011
  3. 0.9% SODIUM CHLORIDE INJECTION [Suspect]
     Active Substance: SODIUM CHLORIDE
     Indication: MEDICATION DILUTION
     Dosage: DILUTION OF CYTOSAR + (4:1) GLUCOSE AND SODIUM CHLORIDE INJECTION + 0.9% SODIUM CHLORIDE INJECTION
     Route: 041
     Dates: start: 20181009, end: 20181011
  4. ENDOXAN [Suspect]
     Active Substance: CYCLOPHOSPHAMIDE
     Indication: ACUTE LYMPHOCYTIC LEUKAEMIA
     Dosage: DOSAGE FORM: POWDER-INJECTION, DILUTION OF CYCLOPHOSPHAMIDE + GLUCOSE AND SODIUM CHLORIDE INJECTION
     Route: 041
     Dates: start: 20181009, end: 20181009
  5. 0.9% SODIUM CHLORIDE INJECTION [Suspect]
     Active Substance: SODIUM CHLORIDE
     Dosage: DILUTION OF CYTOSAR + 0.9% SODIUM CHLORIDE INJECTION
     Route: 037
     Dates: start: 20181009, end: 20181009
  6. 0.9% SODIUM CHLORIDE INJECTION [Suspect]
     Active Substance: SODIUM CHLORIDE
     Dosage: DILUTION OF CYCLOPHOSPHAMIDE + (4:1) GLUCOSE AND SODIUM CHLORIDE INJECTION + 0.9% SODIUM CHLORIDE IN
     Route: 041
     Dates: start: 20181009, end: 20181009
  7. CYTOSAR [Suspect]
     Active Substance: CYTARABINE
     Dosage: DILUTION OF CYTOSAR + 0.9% SODIUM CHLORIDE INJECTION
     Route: 037
     Dates: start: 20181009, end: 20181009
  8. METHOTREXATE. [Suspect]
     Active Substance: METHOTREXATE
     Indication: ACUTE LYMPHOCYTIC LEUKAEMIA
     Dosage: DILUTION OF METHOTREXATE FOR INJECTION + DEXAMETHASONE SODIUM PHOSPHATE INJECTION + 0.9% SODIUM CHLO
     Route: 037
     Dates: start: 20181009, end: 20181009
  9. OUBEI [Suspect]
     Active Substance: ONDANSETRON HYDROCHLORIDE
     Indication: ACUTE LYMPHOCYTIC LEUKAEMIA
     Route: 042
     Dates: start: 20181009, end: 20181011
  10. 0.9% SODIUM CHLORIDE INJECTION [Suspect]
     Active Substance: SODIUM CHLORIDE
     Dosage: DILUTION OF METHOTREXATE FOR INJECTION + DEXAMETHASONE SODIUM PHOSPHATE INJECTION + 0.9% SODIUM CHLO
     Route: 037
     Dates: start: 20181009, end: 20181009
  11. DEXAMETHASONE SODIUM PHOSPHATE. [Suspect]
     Active Substance: DEXAMETHASONE SODIUM PHOSPHATE
     Indication: ACUTE LYMPHOCYTIC LEUKAEMIA
     Dosage: DILUTION OF METHOTREXATE FOR INJECTION + DEXAMETHASONE SODIUM PHOSPHATE INJECTION + 0.9% SODIUM CHLO
     Route: 037
     Dates: start: 20181009, end: 20181009
  12. MERCAPTOPURINE. [Suspect]
     Active Substance: MERCAPTOPURINE
     Indication: ACUTE LYMPHOCYTIC LEUKAEMIA
     Dosage: TABLETS, EVERY NIGHT
     Route: 048
     Dates: start: 20181009, end: 20181016
  13. CYTOSAR [Suspect]
     Active Substance: CYTARABINE
     Indication: ACUTE LYMPHOCYTIC LEUKAEMIA
     Dosage: DOSAGE FORM: POWDER-INJECTION, DILUTION OF CYTOSAR + GLUCOSE AND SODIUM CHLORIDE INJECTION + 0.9% SO
     Route: 041
     Dates: start: 20181009, end: 20181011

REACTIONS (1)
  - Bone marrow failure [Recovering/Resolving]

NARRATIVE: CASE EVENT DATE: 20181016
